FAERS Safety Report 7513575-0 (Version None)
Quarter: 2011Q2

REPORT INFORMATION
  Report Type: 
  Country: None (occurrence: None)
  Receive Date: 20110520
  Receipt Date: 20110510
  Transmission Date: 20111010
  Serious: Yes (Hospitalization)
  Sender: FDA-Public Use
  Company Number: AXC-2011-000218

PATIENT
  Age: 34 Year
  Sex: Female
  Weight: 52.2 kg

DRUGS (1)
  1. BENTYL [Suspect]
     Indication: ABDOMINAL PAIN
     Dosage: 1 DF, SINGLE, INTRAVENOUS
     Route: 042
     Dates: start: 20110509, end: 20110509

REACTIONS (1)
  - INCORRECT ROUTE OF DRUG ADMINISTRATION [None]
